FAERS Safety Report 18789032 (Version 2)
Quarter: 2021Q1

REPORT INFORMATION
  Report Type: Spontaneous
  Country: GB (occurrence: GB)
  Receive Date: 20210126
  Receipt Date: 20210316
  Transmission Date: 20210419
  Serious: Yes (Hospitalization)
  Sender: FDA-Public Use
  Company Number: GB-MYLANLABS-2021M1003956

PATIENT
  Age: 71 Year
  Sex: Female

DRUGS (2)
  1. CLOZARIL [Suspect]
     Active Substance: CLOZAPINE
     Dosage: UNK
     Dates: start: 202101, end: 20210206
  2. CLOZARIL [Suspect]
     Active Substance: CLOZAPINE
     Indication: SCHIZOPHRENIA
     Dosage: UNK
     Route: 048
     Dates: start: 20040223, end: 20201226

REACTIONS (7)
  - Vomiting [Unknown]
  - Leukocytosis [Unknown]
  - Drug intolerance [Unknown]
  - Oesophageal carcinoma [Unknown]
  - Neutrophilia [Unknown]
  - Respiratory tract infection [Unknown]
  - Differential white blood cell count abnormal [Unknown]

NARRATIVE: CASE EVENT DATE: 20210120
